FAERS Safety Report 12757617 (Version 2)
Quarter: 2016Q4

REPORT INFORMATION
  Report Type: Spontaneous
  Country: US (occurrence: US)
  Receive Date: 20160919
  Receipt Date: 20161018
  Transmission Date: 20170207
  Serious: Yes (Death, Disabling)
  Sender: FDA-Public Use
  Company Number: US-BAUSCH-BL-2016-022710

PATIENT
  Sex: Male
  Weight: 88.53 kg

DRUGS (2)
  1. XIFAXAN [Suspect]
     Active Substance: RIFAXIMIN
     Indication: THINKING ABNORMAL
  2. XIFAXAN [Suspect]
     Active Substance: RIFAXIMIN
     Indication: NON-ALCOHOLIC STEATOHEPATITIS
     Route: 065
     Dates: start: 20160420, end: 20160912

REACTIONS (1)
  - Non-alcoholic steatohepatitis [Fatal]
